FAERS Safety Report 14216025 (Version 2)
Quarter: 2017Q4

REPORT INFORMATION
  Report Type: Spontaneous
  Country: LK (occurrence: LK)
  Receive Date: 20171122
  Receipt Date: 20171221
  Transmission Date: 20180321
  Serious: Yes (Hospitalization, Disabling, Other)
  Sender: FDA-Public Use
  Company Number: LK-CONCORDIA PHARMACEUTICALS INC.-E2B_00008499

PATIENT
  Age: 51 Year
  Sex: Male

DRUGS (5)
  1. CEFUROXIME. [Suspect]
     Active Substance: CEFUROXIME
     Route: 048
  2. URSODEOXYCHOLIC ACID [Concomitant]
     Active Substance: URSODIOL
  3. PREDNISOLONE. [Suspect]
     Active Substance: PREDNISOLONE
     Route: 048
  4. CEFUROXIME. [Suspect]
     Active Substance: CEFUROXIME
     Indication: CHOLELITHIASIS
     Route: 042
  5. CHOLESTYRAMINE. [Concomitant]
     Active Substance: CHOLESTYRAMINE
     Indication: CHOLANGITIS

REACTIONS (3)
  - Condition aggravated [Recovered/Resolved]
  - Cholangitis [Recovered/Resolved]
  - Drug ineffective [Unknown]
